FAERS Safety Report 25685741 (Version 1)
Quarter: 2025Q3

REPORT INFORMATION
  Report Type: Spontaneous
  Country: EU (occurrence: EU)
  Receive Date: 20250815
  Receipt Date: 20250815
  Transmission Date: 20251020
  Serious: Yes (Other)
  Sender: ROCHE
  Company Number: EU-ROCHE-10000357564

PATIENT
  Age: 65 Year
  Sex: Male

DRUGS (8)
  1. ATEZOLIZUMAB [Suspect]
     Active Substance: ATEZOLIZUMAB
     Indication: Neuroendocrine carcinoma
     Route: 065
     Dates: start: 20220428
  2. ETOPOSIDE [Suspect]
     Active Substance: ETOPOSIDE
     Indication: Neuroendocrine carcinoma
     Route: 065
     Dates: start: 20220428
  3. CARBOPLATIN [Suspect]
     Active Substance: CARBOPLATIN
     Indication: Neuroendocrine carcinoma
     Route: 065
     Dates: start: 20220428
  4. CYCLOPHOSPHAMIDE [Suspect]
     Active Substance: CYCLOPHOSPHAMIDE
     Indication: Neuroendocrine carcinoma
     Route: 065
     Dates: start: 20241202
  5. MESNA [Suspect]
     Active Substance: MESNA
     Indication: Neuroendocrine carcinoma
     Route: 065
     Dates: start: 20241202
  6. VINCRISTINE [Suspect]
     Active Substance: VINCRISTINE
     Indication: Neuroendocrine carcinoma
     Route: 065
     Dates: start: 20241202
  7. EPIRUBICIN [Suspect]
     Active Substance: EPIRUBICIN
     Indication: Neuroendocrine carcinoma
     Route: 065
     Dates: start: 20241202
  8. IRINOTECAN [Concomitant]
     Active Substance: IRINOTECAN
     Dates: start: 202505

REACTIONS (4)
  - Lung neoplasm malignant [Unknown]
  - Dysphagia [Unknown]
  - Hepatic cancer metastatic [Unknown]
  - Ill-defined disorder [Unknown]
